FAERS Safety Report 20540484 (Version 1)
Quarter: 2022Q1

REPORT INFORMATION
  Report Type: Spontaneous
  Country: SI (occurrence: SI)
  Receive Date: 20220302
  Receipt Date: 20220302
  Transmission Date: 20220423
  Serious: Yes (Hospitalization)
  Sender: FDA-Public Use
  Company Number: SI-GRUNENTHAL-2021-271825

PATIENT
  Age: 23 Year
  Sex: Male
  Weight: 50.5 kg

DRUGS (2)
  1. TRAMADOL HYDROCHLORIDE [Suspect]
     Active Substance: TRAMADOL HYDROCHLORIDE
     Indication: Product used for unknown indication
     Dosage: UNK
     Route: 065
  2. EBOLA VACCINE NOS [Suspect]
     Active Substance: EBOLA VACCINE
     Indication: Immunisation
     Dosage: UNK
     Route: 030
     Dates: start: 20180606, end: 20180606

REACTIONS (3)
  - Drug abuse [Unknown]
  - Substance-induced psychotic disorder [Not Recovered/Not Resolved]
  - Tinea versicolour [Unknown]

NARRATIVE: CASE EVENT DATE: 20210101
